FAERS Safety Report 6971952-0 (Version None)
Quarter: 2010Q3

REPORT INFORMATION
  Report Type: 
  Country: None (occurrence: None)
  Receive Date: 20100908
  Receipt Date: 20100908
  Transmission Date: 20110219
  Serious: Yes (Other)
  Sender: FDA-Public Use
  Company Number: None

PATIENT
  Sex: Female
  Weight: 70.3075 kg

DRUGS (1)
  1. CRESTOR [Suspect]
     Dosage: 10 MGS 1 DAILY MOUTH
     Route: 048
     Dates: start: 20100521, end: 20100604

REACTIONS (2)
  - MUSCULAR WEAKNESS [None]
  - MYALGIA [None]
